FAERS Safety Report 24037079 (Version 1)
Quarter: 2024Q3

REPORT INFORMATION
  Report Type: Spontaneous
  Country: CN (occurrence: CN)
  Receive Date: 20240701
  Receipt Date: 20240701
  Transmission Date: 20241016
  Serious: Yes (Hospitalization)
  Sender: BEIGENE
  Company Number: CN-BEIGENE-BGN-2024-009821

PATIENT

DRUGS (3)
  1. TISLELIZUMAB [Suspect]
     Active Substance: TISLELIZUMAB
     Indication: Lung squamous cell carcinoma stage IV
     Dosage: 200 MILLIGRAM, Q3WK
     Route: 041
     Dates: start: 20240530, end: 20240530
  2. CISPLATIN [Suspect]
     Active Substance: CISPLATIN
     Indication: Lung squamous cell carcinoma stage IV
     Dosage: 30 MILLIGRAM
     Dates: start: 20240530
  3. PACLITAXEL [Concomitant]
     Active Substance: PACLITAXEL
     Indication: Lung squamous cell carcinoma stage IV
     Dosage: 250 MILLIGRAM
     Dates: start: 20240530

REACTIONS (2)
  - Rash [Unknown]
  - General physical health deterioration [Not Recovered/Not Resolved]

NARRATIVE: CASE EVENT DATE: 20240530
